FAERS Safety Report 6357592-5 (Version None)
Quarter: 2009Q3

REPORT INFORMATION
  Report Type: 
  Country: None (occurrence: None)
  Receive Date: 20090916
  Receipt Date: 20090909
  Transmission Date: 20100115
  Serious: Yes (Other)
  Sender: FDA-Public Use
  Company Number: PHHY2008FR32464

PATIENT
  Sex: Female
  Weight: 54 kg

DRUGS (3)
  1. GLEEVEC [Suspect]
     Indication: CHRONIC MYELOID LEUKAEMIA
     Dosage: 400 MG/DAY
     Dates: start: 20051101, end: 20090612
  2. ORAL CONTRACEPTIVE NOS [Concomitant]
  3. CERAZETTE [Concomitant]
     Indication: CONTRACEPTION
     Dosage: 1 DF, QD
     Dates: start: 20051101, end: 20080401

REACTIONS (3)
  - DERMATITIS BULLOUS [None]
  - PORPHYRIA [None]
  - PORPHYRIA NON-ACUTE [None]
